FAERS Safety Report 6109953-7 (Version None)
Quarter: 2009Q1

REPORT INFORMATION
  Report Type: 
  Country: None (occurrence: None)
  Receive Date: 20090310
  Receipt Date: 20080926
  Transmission Date: 20090719
  Serious: No
  Sender: FDA-Public Use
  Company Number: A0749401A

PATIENT
  Age: 43 Year
  Sex: Female

DRUGS (12)
  1. NICORETTE [Suspect]
     Dates: start: 20080923, end: 20080924
  2. NICODERM CQ [Suspect]
     Dates: start: 20080925
  3. CYCLOBENZAPRIN [Concomitant]
  4. REQUIP [Concomitant]
  5. TRILEPTAL [Concomitant]
  6. WELLBUTRIN [Concomitant]
  7. LORAZEPAM [Concomitant]
  8. HUMIRA [Concomitant]
  9. IMITREX [Concomitant]
  10. FOSAMAX [Concomitant]
  11. VITAMIN D [Concomitant]
  12. HYDROCODONE BITARTRATE [Concomitant]

REACTIONS (3)
  - INTENTIONAL DRUG MISUSE [None]
  - IRRITABILITY [None]
  - TOOTH DISORDER [None]
